FAERS Safety Report 6601118-5 (Version None)
Quarter: 2010Q1

REPORT INFORMATION
  Report Type: 
  Country: None (occurrence: None)
  Receive Date: 20100225
  Receipt Date: 20100222
  Transmission Date: 20100710
  Serious: Yes (Death, Other)
  Sender: FDA-Public Use
  Company Number: PHHY2009BR43179

PATIENT
  Sex: Female

DRUGS (6)
  1. EXELON [Suspect]
     Indication: DEMENTIA ALZHEIMER'S TYPE
     Dosage: 1 PATCH (9 MG/5 CM2) EVERY 24 HOURS
     Route: 062
  2. EXELON [Suspect]
     Dosage: 1 PATCH (18 MG/10 CM2) EVERY 24 HOURS
     Route: 062
  3. RISPERIDONE [Concomitant]
     Dosage: UNK
  4. ALENDRONATE SODIUM [Concomitant]
     Indication: OSTEOPOROSIS
     Dosage: ONCE PER WEEK
     Route: 048
     Dates: end: 20090101
  5. CALCIUM [Concomitant]
     Indication: OSTEOPOROSIS
     Dosage: ONCE PER DAY
     Route: 048
     Dates: end: 20090401
  6. EVISTA [Concomitant]
     Indication: OSTEOPOROSIS
     Dosage: UNK
     Route: 048
     Dates: end: 20090401

REACTIONS (7)
  - ASTHENIA [None]
  - CONDITION AGGRAVATED [None]
  - CONSTIPATION [None]
  - DEATH [None]
  - IMMOBILE [None]
  - INCREASED UPPER AIRWAY SECRETION [None]
  - LUNG DISORDER [None]
